FAERS Safety Report 14674358 (Version 2)
Quarter: 2018Q2

REPORT INFORMATION
  Report Type: Report from Study
  Country: KR (occurrence: KR)
  Receive Date: 20180323
  Receipt Date: 20180404
  Transmission Date: 20180711
  Serious: Yes (Hospitalization, Other)
  Sender: FDA-Public Use
  Company Number: KR-GLAXOSMITHKLINE-KR2018GSK048597

PATIENT
  Age: 50 Year
  Sex: Female
  Weight: 45 kg

DRUGS (15)
  1. CLARITYNE [Concomitant]
     Active Substance: LORATADINE
     Indication: ASTHMA
     Dosage: 10 MG, QD
     Dates: start: 20170801, end: 20170919
  2. EBASTEL [Concomitant]
     Active Substance: EBASTINE
     Indication: ASTHMA
     Dosage: 10 MG, 1D
     Dates: start: 20150723
  3. ANYCOUGH [Concomitant]
     Active Substance: THEOBROMINE
     Indication: COUGH
     Dosage: 1 DF, BID
     Dates: start: 20170531, end: 20170731
  4. SINGULAIR [Concomitant]
     Active Substance: MONTELUKAST SODIUM
     Indication: ASTHMA
     Dosage: 10 MG, 1D
     Dates: start: 20150723
  5. FLUTICASONE FUROATE + VILANTEROL TRIFENATATE [Suspect]
     Active Substance: FLUTICASONE FUROATE\VILANTEROL TRIFENATATE
     Indication: ASTHMA
     Dosage: 1 PUFF(S), QD
     Route: 055
     Dates: start: 20170531
  6. ALLERGA [Concomitant]
     Indication: ASTHMA
     Dosage: 120 MG, QD
     Dates: start: 20150723
  7. ACTIFED [Concomitant]
     Active Substance: PSEUDOEPHEDRINE HYDROCHLORIDE\TRIPROLIDINE HYDROCHLORIDE
     Indication: COUGH
     Dosage: 0.5 DF, BID
     Dates: start: 20170531, end: 20170731
  8. ERDOS [Concomitant]
     Active Substance: ERDOSTEINE
     Indication: COUGH
     Dosage: 1 DF, BID
     Dates: start: 20170531, end: 20170731
  9. FLOMOX [Concomitant]
     Active Substance: CEFCAPENE PIVOXIL HYDROCHLORIDE HYDRATE
     Indication: COUGH
     Dosage: 2 DF, BID
     Dates: start: 20170531, end: 20170731
  10. ARONAMIN C PLUS [Concomitant]
     Indication: VITAMIN D DEFICIENCY
     Dosage: 1 DF, QD
     Dates: start: 20150723
  11. RULID [Concomitant]
     Active Substance: ROXITHROMYCIN
     Indication: COUGH
     Dosage: 1 DF, QD
     Dates: start: 20170531, end: 20170731
  12. SOLONDO [Concomitant]
     Active Substance: PREDNISOLONE
     Indication: COUGH
     Dosage: 1 DF, BID
     Dates: start: 20170531, end: 20170731
  13. XYZAL [Concomitant]
     Active Substance: LEVOCETIRIZINE DIHYDROCHLORIDE
     Indication: ASTHMA
     Dosage: 1 DF, QD
     Dates: start: 20170801
  14. DICAMAX-D [Concomitant]
     Indication: VITAMIN D DEFICIENCY
     Dosage: 1 DF, QD
     Dates: start: 20150723
  15. AVAMYS [Concomitant]
     Active Substance: FLUTICASONE FUROATE
     Indication: RHINITIS
     Dosage: 2 PUFF(S), QD
     Dates: start: 20170801, end: 20170920

REACTIONS (1)
  - Eosinophilic granulomatosis with polyangiitis [Not Recovered/Not Resolved]

NARRATIVE: CASE EVENT DATE: 20171026
